FAERS Safety Report 13017493 (Version 1)
Quarter: 2016Q4

REPORT INFORMATION
  Report Type: Spontaneous
  Country: IT (occurrence: IT)
  Receive Date: 20161212
  Receipt Date: 20161212
  Transmission Date: 20170207
  Serious: Yes (Hospitalization)
  Sender: FDA-Public Use
  Company Number: IT-ASTRAZENECA-2016SF29530

PATIENT
  Age: 31466 Day
  Sex: Female

DRUGS (9)
  1. OMEPRAZOLE. [Suspect]
     Active Substance: OMEPRAZOLE
     Route: 048
  2. ADALAT CRONO [Suspect]
     Active Substance: NIFEDIPINE
     Dosage: 30.0MG UNKNOWN
     Route: 065
  3. SOTALOL. [Suspect]
     Active Substance: SOTALOL
     Route: 065
  4. LASIX [Suspect]
     Active Substance: FUROSEMIDE
     Dosage: UNKNOWN DOSE REDUCED TO ONE CAPSULE ON ALTERNATE DAYS
     Route: 065
  5. PLETAL [Suspect]
     Active Substance: CILOSTAZOL
     Route: 065
  6. TRIATEC [Suspect]
     Active Substance: RAMIPRIL
     Route: 048
  7. CARDURA [Suspect]
     Active Substance: DOXAZOSIN MESYLATE
     Route: 065
  8. CARDIOASPIRIN [Suspect]
     Active Substance: ASPIRIN
     Dosage: 100.0MG UNKNOWN
     Route: 065
  9. LASIX [Suspect]
     Active Substance: FUROSEMIDE
     Route: 065

REACTIONS (3)
  - Hypotension [Unknown]
  - Asthenia [Unknown]
  - Atrial fibrillation [Unknown]

NARRATIVE: CASE EVENT DATE: 20160413
